FAERS Safety Report 16598541 (Version 1)
Quarter: 2019Q3

REPORT INFORMATION
  Report Type: Spontaneous
  Country: DE (occurrence: DE)
  Receive Date: 20190719
  Receipt Date: 20190719
  Transmission Date: 20191004
  Serious: Yes (Hospitalization, Other)
  Sender: FDA-Public Use
  Company Number: DE-PFIZER INC-2019303838

PATIENT
  Age: 68 Year
  Sex: Female

DRUGS (15)
  1. ATENOLOL. [Concomitant]
     Active Substance: ATENOLOL
     Dosage: 50 MG, 1-0-1-0, 2X/DAY
  2. GEMCITABINE HYDROCHLORIDE. [Suspect]
     Active Substance: GEMCITABINE HYDROCHLORIDE
     Dosage: UNK MG, UNK
     Dates: end: 20180116
  3. MACROGOL 3350/POTASSIUM CHLORIDE/SODIUM BICARBONATE/SODIUM CHLORIDE [Concomitant]
     Dosage: UNK MG, AS NEEDED
  4. LEVOTHYROXIN [Concomitant]
     Active Substance: LEVOTHYROXINE
     Dosage: 50 MG,0.5-0-0-0, 1X/DAY
  5. DIMETINDEN [Concomitant]
     Active Substance: DIMETHINDENE
     Dosage: 4 MG, 1-0-0-0, 1X/DAY
  6. OXYCODON [Concomitant]
     Active Substance: OXYCODONE
     Dosage: 10 MG, 1-0-1-0, 2X/DAY
  7. ONDANSETRON [Concomitant]
     Active Substance: ONDANSETRON
     Dosage: 8 MG, AS NEEDED UP TO 4 X/DAY
  8. ENOXAPARIN [Concomitant]
     Active Substance: ENOXAPARIN
     Dosage: 0.7 ML, 1-0-1-0, 2X/DAY
  9. PANTOPRAZOLE [Concomitant]
     Active Substance: PANTOPRAZOLE
     Dosage: 40 MG, 1-0-0-0, 1X/DAY
  10. TORASEMID [Concomitant]
     Active Substance: TORSEMIDE
     Dosage: 10 MG, 1-0-0-0, 1X/DAY
  11. METOPROLOL. [Concomitant]
     Active Substance: METOPROLOL
     Dosage: 10 MG, 1-1-1-0, 3X/DAY
  12. COLECALCIFEROL [Concomitant]
     Active Substance: CHOLECALCIFEROL
     Dosage: 1000 IU, 1-0-0-0,  1X/DAY
  13. METOCLOPRAMID [Concomitant]
     Active Substance: METOCLOPRAMIDE
     Dosage: 10 MG, UP TO 4 X/DAY
  14. METAMIZOL [Concomitant]
     Active Substance: METAMIZOLE SODIUM
     Dosage: 40 UNK, 40-40-40-40 DROPS 4X/DAY
  15. CALCIUM [Concomitant]
     Active Substance: CALCIUM
     Dosage: 500 MG, 1-0-0-0, EFFERVESCENT TABLETS

REACTIONS (5)
  - Decreased appetite [Unknown]
  - General physical health deterioration [Unknown]
  - Asthenia [Unknown]
  - Abdominal pain [Unknown]
  - Gamma-glutamyltransferase increased [Unknown]

NARRATIVE: CASE EVENT DATE: 20180212
